FAERS Safety Report 4979383-X (Version None)
Quarter: 2006Q2

REPORT INFORMATION
  Report Type: 
  Country: None (occurrence: None)
  Receive Date: 20060421
  Receipt Date: 20030605
  Transmission Date: 20061013
  Serious: Yes (Hospitalization, Other)
  Sender: FDA-Public Use
  Company Number: US-MERCK-0306USA00626

PATIENT
  Age: 47 Year
  Sex: Female
  Weight: 135 kg

DRUGS (2)
  1. VIOXX [Suspect]
     Indication: OSTEOARTHRITIS
     Route: 048
     Dates: start: 20001101, end: 20010719
  2. VIOXX [Suspect]
     Indication: RHEUMATOID ARTHRITIS
     Route: 048
     Dates: start: 20001101, end: 20010719

REACTIONS (36)
  - ADNEXA UTERI MASS [None]
  - ARRHYTHMIA [None]
  - CARDIAC FAILURE CONGESTIVE [None]
  - CARDIAC MURMUR [None]
  - CHEST INJURY [None]
  - COLONIC POLYP [None]
  - DIABETES MELLITUS [None]
  - DIVERTICULUM [None]
  - DIZZINESS [None]
  - DYSPHAGIA [None]
  - DYSPNOEA EXERTIONAL [None]
  - DYSPNOEA PAROXYSMAL NOCTURNAL [None]
  - FLUSHING [None]
  - GASTRITIS [None]
  - HAEMORRHOIDS [None]
  - HEADACHE [None]
  - HYPERHIDROSIS [None]
  - HYPERTENSION [None]
  - INCONTINENCE [None]
  - INFLUENZA LIKE ILLNESS [None]
  - LIMB DISCOMFORT [None]
  - MYOCARDIAL INFARCTION [None]
  - NAUSEA [None]
  - NEPHROLITHIASIS [None]
  - NEUROPATHY PERIPHERAL [None]
  - NON-CARDIAC CHEST PAIN [None]
  - OEDEMA PERIPHERAL [None]
  - PAIN IN EXTREMITY [None]
  - PNEUMONIA [None]
  - PYELONEPHRITIS [None]
  - RASH [None]
  - RENAL HAEMORRHAGE [None]
  - ROAD TRAFFIC ACCIDENT [None]
  - SWELLING FACE [None]
  - SYSTEMIC LUPUS ERYTHEMATOSUS [None]
  - URINARY TRACT INFECTION [None]
